FAERS Safety Report 7485643-3 (Version None)
Quarter: 2011Q2

REPORT INFORMATION
  Report Type: 
  Country: None (occurrence: None)
  Receive Date: 20110517
  Receipt Date: 20080723
  Transmission Date: 20111010
  Serious: Yes (Death, Other)
  Sender: FDA-Public Use
  Company Number: US-BAYER-200813813NA

PATIENT
  Age: 76 Year
  Sex: Female
  Weight: 72.472 kg

DRUGS (8)
  1. MAGNEVIST [Suspect]
     Dosage: 15 ML, ONCE
     Route: 042
     Dates: start: 20051227
  2. MULTIHANCE [Suspect]
     Indication: NUCLEAR MAGNETIC RESONANCE IMAGING
     Dosage: 20 ML, ONCE
     Dates: start: 20041207, end: 20041207
  3. MAGNEVIST [Suspect]
     Indication: NUCLEAR MAGNETIC RESONANCE IMAGING
     Dosage: 40 ML, ONCE
     Dates: start: 20050328, end: 20050328
  4. MAGNEVIST [Suspect]
     Dosage: 15 ML, ONCE
     Dates: start: 20051128, end: 20051128
  5. MAGNEVIST [Suspect]
     Indication: ANGIOGRAM
     Dosage: 15 ML, ONCE
     Dates: start: 20051207, end: 20051207
  6. MAGNEVIST [Suspect]
     Indication: VENOGRAM
     Dosage: 15 ML, ONCE
     Dates: start: 20050314, end: 20050314
  7. MULTIHANCE [Suspect]
     Indication: ANGIOGRAM
     Dosage: UNK
     Dates: start: 20050514, end: 20050514
  8. MULTIHANCE [Suspect]
     Indication: VENOGRAM
     Dosage: UNK
     Dates: start: 20040405, end: 20040405

REACTIONS (16)
  - INJURY [None]
  - SKIN HYPERTROPHY [None]
  - SKIN HYPERPIGMENTATION [None]
  - SKIN TIGHTNESS [None]
  - GENERAL PHYSICAL HEALTH DETERIORATION [None]
  - ANXIETY [None]
  - PEAU D'ORANGE [None]
  - SKIN PLAQUE [None]
  - JOINT RANGE OF MOTION DECREASED [None]
  - EMOTIONAL DISTRESS [None]
  - OEDEMA PERIPHERAL [None]
  - SKIN FIBROSIS [None]
  - ERYTHEMA [None]
  - PRURITUS [None]
  - NEPHROGENIC SYSTEMIC FIBROSIS [None]
  - PAIN [None]
